FAERS Safety Report 9155212 (Version 1)
Quarter: 2013Q1

REPORT INFORMATION
  Report Type: Spontaneous
  Country: US (occurrence: US)
  Receive Date: 20130311
  Receipt Date: 20130311
  Transmission Date: 20140127
  Serious: Yes (Disabling, Other)
  Sender: FDA-Public Use
  Company Number: US-WATSON-2012-19976

PATIENT
  Age: 52 Year
  Sex: Female

DRUGS (2)
  1. MORPHINE SULFATE (UNKNOWN) [Suspect]
     Indication: POST LAMINECTOMY SYNDROME
     Dosage: PEAK DOSE 16 MG/DAY
     Route: 037
  2. BUPIVICAINE [Concomitant]
     Indication: POST LAMINECTOMY SYNDROME
     Dosage: UNK
     Route: 065

REACTIONS (3)
  - Injection site granuloma [Recovered/Resolved with Sequelae]
  - Monoplegia [Recovered/Resolved with Sequelae]
  - Neuralgia [Unknown]
